FAERS Safety Report 9848380 (Version 1)
Quarter: 2014Q1

REPORT INFORMATION
  Report Type: Spontaneous
  Country: US (occurrence: None)
  Receive Date: 20140122
  Receipt Date: 20140122
  Transmission Date: 20141002
  Serious: Yes (Death)
  Sender: FDA-Public Use
  Company Number: B0959165A

PATIENT
  Age: 41 Year
  Sex: Female

DRUGS (5)
  1. BUPROPION HYDROCHLORIDE UNSPECIFIED TABLET (GENERIC) (BUPROPION HYDROCHLORIDE) [Suspect]
     Route: 048
  2. RISPERIDONE (FORMULATION UNKNOWN) (GENERIC) (RISPERIDONE) [Suspect]
     Route: 048
  3. LAMOTRIGINE (FORMULATION UNKNOWN) (GENERIC) (LAMOTRIGINE) [Suspect]
     Route: 048
  4. OMEPRAZOLE [Suspect]
     Route: 048
  5. CITALOPRAM (FORMULATION UNKNOWN) (CITALOPRAM) [Suspect]
     Route: 048

REACTIONS (1)
  - Completed suicide [None]
